FAERS Safety Report 14972293 (Version 1)
Quarter: 2018Q2

REPORT INFORMATION
  Report Type: Spontaneous
  Country: JP (occurrence: JP)
  Receive Date: 20180605
  Receipt Date: 20180605
  Transmission Date: 20180711
  Serious: Yes (Other)
  Sender: FDA-Public Use
  Company Number: JP-APOTEX-2018AP015117

PATIENT
  Age: 80 Year
  Sex: Female

DRUGS (1)
  1. PAXIL CR [Suspect]
     Active Substance: PAROXETINE HYDROCHLORIDE
     Indication: DEPRESSION
     Dosage: 12.5 MG, UNK
     Route: 048

REACTIONS (1)
  - Electrocardiogram QT prolonged [Unknown]
